FAERS Safety Report 19424499 (Version 5)
Quarter: 2022Q1

REPORT INFORMATION
  Report Type: Report from Study
  Country: CN (occurrence: CN)
  Receive Date: 20210616
  Receipt Date: 20220310
  Transmission Date: 20220423
  Serious: Yes (Hospitalization, Other)
  Sender: FDA-Public Use
  Company Number: CN-BRISTOL-MYERS SQUIBB COMPANY-BMS-2021-057279

PATIENT
  Age: 64 Year
  Sex: Female
  Weight: 69 kg

DRUGS (18)
  1. NIVOLUMAB [Suspect]
     Active Substance: NIVOLUMAB
     Indication: Bladder cancer
     Dosage: 360 MILLIGRAM
     Route: 042
     Dates: start: 20210602
  2. GEMCITABINE HYDROCHLORIDE [Suspect]
     Active Substance: GEMCITABINE HYDROCHLORIDE
     Indication: Bladder cancer
     Dosage: 1750 MILLIGRAM
     Route: 042
     Dates: start: 20210602
  3. CISPLATIN [Suspect]
     Active Substance: CISPLATIN
     Indication: Bladder cancer
     Dosage: 122.5 MILLIGRAM
     Route: 042
     Dates: start: 20210602
  4. ASPIRIN [Concomitant]
     Active Substance: ASPIRIN
     Indication: Product used for unknown indication
     Dosage: 100 MILLIGRAM
     Route: 065
     Dates: start: 202106, end: 202106
  5. LEVOFLOXACIN [Concomitant]
     Active Substance: LEVOFLOXACIN
     Indication: Product used for unknown indication
     Dosage: 0.1 GRAM
     Route: 065
  6. EDARAVONE [Concomitant]
     Active Substance: EDARAVONE
     Indication: Product used for unknown indication
     Dosage: 5 MILLILITER
     Route: 065
     Dates: start: 202106, end: 202106
  7. ACEGLUTAMIDE [Concomitant]
     Active Substance: ACEGLUTAMIDE
     Indication: Thrombosis
     Dosage: 0.3 GRAM
     Route: 065
     Dates: start: 202106, end: 202106
  8. LACTULOSE [Concomitant]
     Active Substance: LACTULOSE
     Indication: Constipation
     Dosage: 66.7 GRAM
     Route: 065
  9. HEPARIN CALCIUM [Concomitant]
     Active Substance: HEPARIN CALCIUM
     Indication: Product used for unknown indication
     Dosage: 0.4 MILLILITER
     Route: 065
     Dates: start: 202106, end: 202106
  10. ILAPRAZOLE [Concomitant]
     Active Substance: ILAPRAZOLE
     Indication: Product used for unknown indication
     Dosage: 5 MILLIGRAM
     Route: 065
  11. CLOPIDOGREL BISULFATE [Concomitant]
     Active Substance: CLOPIDOGREL BISULFATE
     Indication: Thrombosis
     Dosage: 75 MILLIGRAM
     Route: 065
     Dates: start: 202106, end: 202106
  12. SOLIFENACIN [Concomitant]
     Active Substance: SOLIFENACIN
     Indication: Thrombosis
     Dosage: 1 DOSAGE=0.15 PNA
     Route: 065
  13. NIMESULIDE [Concomitant]
     Active Substance: NIMESULIDE
     Indication: Analgesic therapy
     Dosage: 0.1 GRAM
     Route: 065
  14. ATORVASTATIN CALCIUM [Concomitant]
     Active Substance: ATORVASTATIN CALCIUM
     Indication: Hypercholesterolaemia
     Dosage: 20 MILLIGRAM
     Route: 065
     Dates: start: 202106, end: 202106
  15. UROKINASE [Concomitant]
     Active Substance: UROKINASE
     Indication: Thrombosis
     Dosage: 100000 UNIT
     Route: 065
     Dates: start: 202106, end: 202106
  16. GLYCERINE ENEMA [Concomitant]
     Indication: Constipation
     Dosage: 20 MILLILITER
     Route: 065
  17. URINARY KALLIDINOGENASE [Concomitant]
     Indication: Product used for unknown indication
     Dosage: 1 DOSAGE FORM = 0.15 PNA
     Route: 065
     Dates: start: 202106, end: 202106
  18. LEUCOGEN [Concomitant]
     Active Substance: LEUCOGEN
     Indication: Product used for unknown indication
     Dosage: 20 MILLIGRAM
     Route: 065
     Dates: start: 20210624

REACTIONS (1)
  - Cerebrovascular accident [Recovered/Resolved]

NARRATIVE: CASE EVENT DATE: 20210610
